FAERS Safety Report 5676326-0 (Version None)
Quarter: 2008Q1

REPORT INFORMATION
  Report Type: 
  Country: None (occurrence: None)
  Receive Date: 20080321
  Receipt Date: 20080311
  Transmission Date: 20080703
  Serious: Yes (Other)
  Sender: FDA-Public Use
  Company Number: US-PFIZER INC-2008022844

PATIENT
  Age: 75 Year
  Sex: Male
  Weight: 75 kg

DRUGS (1)
  1. CHANTIX [Suspect]
     Dates: start: 20080101, end: 20080101

REACTIONS (8)
  - FEELING ABNORMAL [None]
  - HALLUCINATION [None]
  - HALLUCINATION, AUDITORY [None]
  - HALLUCINATION, VISUAL [None]
  - ILLUSION [None]
  - IMPAIRED WORK ABILITY [None]
  - SLEEP DISORDER [None]
  - VISUAL DISTURBANCE [None]
